FAERS Safety Report 15610140 (Version 1)
Quarter: 2018Q4

REPORT INFORMATION
  Report Type: Spontaneous
  Country: US (occurrence: US)
  Receive Date: 20181113
  Receipt Date: 20181113
  Transmission Date: 20190205
  Serious: No
  Sender: FDA-Public Use
  Company Number: US-IPSEN BIOPHARMACEUTICALS, INC.-2018-16925

PATIENT
  Age: 47 Year
  Sex: Female

DRUGS (9)
  1. DYSPORT [Suspect]
     Active Substance: ABOBOTULINUMTOXINA
     Indication: SKIN WRINKLING
     Dosage: NOT REPORTED
     Dates: start: 20181001, end: 20181001
  2. DYSPORT [Suspect]
     Active Substance: ABOBOTULINUMTOXINA
     Indication: SKIN WRINKLING
  3. DYSPORT [Suspect]
     Active Substance: ABOBOTULINUMTOXINA
     Indication: OFF LABEL USE
  4. RESTYLANE LYFT [Suspect]
     Active Substance: HYALURONIC ACID
     Dosage: ZYGOMA
     Dates: start: 20180618, end: 20180618
  5. RESTYLANE LYFT [Suspect]
     Active Substance: HYALURONIC ACID
     Dosage: WITH LIDOCAINE, 0.5 CC IN LEFT ZYGOMA AND 0.5 CC IN RIGHT ZYGOMA WITH 25 G CANNULA
     Dates: start: 20181001, end: 20181001
  6. PRO-BIOTIC [Concomitant]
  7. DYSPORT [Suspect]
     Active Substance: ABOBOTULINUMTOXINA
     Indication: SKIN WRINKLING
  8. RESTYLANE LYFT [Suspect]
     Active Substance: HYALURONIC ACID
     Indication: SKIN COSMETIC PROCEDURE
     Dosage: ZYGOMA, SUBMALAR CHEEK, TEMPLE
     Dates: start: 20171206, end: 20171206
  9. RESTYLANE LYFT [Suspect]
     Active Substance: HYALURONIC ACID
     Dosage: ZYGOMA
     Dates: start: 20180321, end: 20180321

REACTIONS (2)
  - Injection site nodule [Recovering/Resolving]
  - Intentional product use issue [Unknown]

NARRATIVE: CASE EVENT DATE: 20181014
